FAERS Safety Report 18857668 (Version 3)
Quarter: 2021Q3

REPORT INFORMATION
  Report Type: Spontaneous
  Country: US (occurrence: US)
  Receive Date: 20210208
  Receipt Date: 20210823
  Transmission Date: 20211014
  Serious: Yes (Other)
  Sender: FDA-Public Use
  Company Number: US-BEH-2021127887

PATIENT
  Age: 84 Year
  Sex: Male

DRUGS (5)
  1. HAEGARDA [Suspect]
     Active Substance: HUMAN C1-ESTERASE INHIBITOR
     Indication: PROPHYLAXIS
     Dosage: 4800 INTERNATIONAL UNIT, BIW
     Route: 058
     Dates: start: 20200901
  2. HAEGARDA [Suspect]
     Active Substance: HUMAN C1-ESTERASE INHIBITOR
     Indication: HEREDITARY ANGIOEDEMA
     Dosage: 2000 INTERNATIONAL UNIT, OTHER
     Route: 058
     Dates: start: 2017
  3. HAEGARDA [Suspect]
     Active Substance: HUMAN C1-ESTERASE INHIBITOR
     Indication: HEREDITARY ANGIOEDEMA
     Dosage: 4800 INTERNATIONAL UNIT, BIW
     Route: 058
     Dates: start: 20200901
  4. HAEGARDA [Suspect]
     Active Substance: HUMAN C1-ESTERASE INHIBITOR
     Indication: PROPHYLAXIS
     Dosage: 4800 INTERNATIONAL UNIT, BIW
     Route: 058
     Dates: start: 20201126
  5. HAEGARDA [Suspect]
     Active Substance: HUMAN C1-ESTERASE INHIBITOR
     Dosage: 4800 INTERNATIONAL UNIT, BIW
     Route: 058
     Dates: start: 20201126

REACTIONS (10)
  - Hereditary angioedema [Recovering/Resolving]
  - Device issue [Unknown]
  - Product preparation issue [Unknown]
  - Injection site extravasation [Unknown]
  - Hereditary angioedema [Recovering/Resolving]
  - Syringe issue [Unknown]
  - Hereditary angioedema [Recovered/Resolved]
  - Injection site bruising [Unknown]
  - Injection site pain [Unknown]
  - Device leakage [Unknown]

NARRATIVE: CASE EVENT DATE: 20201226
